FAERS Safety Report 9776915 (Version 1)
Quarter: 2013Q4

REPORT INFORMATION
  Report Type: Report from Study
  Country: DE (occurrence: DE)
  Receive Date: 20131221
  Receipt Date: 20131221
  Transmission Date: 20140711
  Serious: Yes (Hospitalization)
  Sender: FDA-Public Use
  Company Number: DE-ROCHE-1320799

PATIENT
  Age: 85 Year
  Sex: Male
  Weight: 72 kg

DRUGS (8)
  1. METHOXY POLYETHYLENE GLYCOL-EPOETIN BETA [Suspect]
     Indication: RENAL FAILURE CHRONIC
     Route: 058
     Dates: start: 20111124
  2. METHOXY POLYETHYLENE GLYCOL-EPOETIN BETA [Suspect]
     Route: 058
  3. HYDROCHLOROTHIAZIDE [Suspect]
     Indication: CARDIAC FAILURE
     Dosage: FREQUENCY 1-0-0
     Route: 048
     Dates: start: 20100304, end: 20130818
  4. TOREM [Suspect]
     Indication: CARDIAC FAILURE
     Dosage: FREQUENCY 1-0-0
     Route: 048
     Dates: start: 20121023
  5. VALSARTAN [Suspect]
     Indication: CORONARY ARTERY DISEASE
     Dosage: FREQUENCY 1-0-0
     Route: 048
     Dates: start: 20130904
  6. SIMVASTATIN [Concomitant]
     Indication: CORONARY ARTERY DISEASE
     Dosage: FREQUENCY 0-0-1
     Route: 048
     Dates: start: 20101020
  7. ACETYLSALICYLIC ACID [Concomitant]
     Indication: CORONARY ARTERY DISEASE
     Route: 048
     Dates: start: 19960401
  8. FEBUXOSTAT [Concomitant]
     Dosage: FREQUENCY 1-0-0
     Route: 048
     Dates: start: 20101021

REACTIONS (14)
  - Confusional state [Recovered/Resolved]
  - Dehydration [Recovered/Resolved]
  - Renal failure chronic [Recovered/Resolved]
  - Gait disturbance [Not Recovered/Not Resolved]
  - Peripheral sensorimotor neuropathy [Not Recovered/Not Resolved]
  - Spinal column stenosis [Not Recovered/Not Resolved]
  - Osteoarthritis [Not Recovered/Not Resolved]
  - Osteoarthritis [Unknown]
  - Concussion [Recovered/Resolved]
  - Wound [Recovered/Resolved]
  - Periorbital haematoma [Recovered/Resolved]
  - Haematoma [Recovered/Resolved]
  - Fall [Unknown]
  - Syncope [Recovered/Resolved]
